FAERS Safety Report 20886389 (Version 1)
Quarter: 2022Q2

REPORT INFORMATION
  Report Type: Spontaneous
  Country: US (occurrence: US)
  Receive Date: 20220527
  Receipt Date: 20220527
  Transmission Date: 20220721
  Serious: Yes (Other)
  Sender: FDA-Public Use
  Company Number: US-BAUSCH-BL-2022-012617

PATIENT
  Sex: Male

DRUGS (5)
  1. ATIVAN [Suspect]
     Active Substance: LORAZEPAM
     Indication: Anxiety
     Dosage: 3MG TWICE A DAY, FOR 5 YEARS
     Route: 048
  2. ATIVAN [Suspect]
     Active Substance: LORAZEPAM
     Indication: Epilepsy
     Dosage: 3MG ONCE DAILY
     Route: 048
  3. ATIVAN [Suspect]
     Active Substance: LORAZEPAM
     Indication: Stress
     Dosage: 2MG AS NEEDED
     Route: 048
  4. ATIVAN [Suspect]
     Active Substance: LORAZEPAM
     Dosage: 1MG AS NEEDED
     Route: 048
  5. CARBAMAZEPINE [Concomitant]
     Active Substance: CARBAMAZEPINE
     Indication: Product used for unknown indication
     Route: 065

REACTIONS (6)
  - Brain operation [Unknown]
  - Drug dependence [Unknown]
  - Heat stroke [Unknown]
  - Panic attack [Unknown]
  - Therapy interrupted [Unknown]
  - Intentional product use issue [Unknown]

NARRATIVE: CASE EVENT DATE: 20210101
